FAERS Safety Report 9136074 (Version 1)
Quarter: 2013Q1

REPORT INFORMATION
  Report Type: Spontaneous
  Country: US (occurrence: US)
  Receive Date: 20130304
  Receipt Date: 20130304
  Transmission Date: 20140127
  Serious: No
  Sender: FDA-Public Use
  Company Number: US-ABBOTT-12P-163-0923720-00

PATIENT
  Sex: Male
  Weight: 81.27 kg

DRUGS (7)
  1. ANDROGEL [Suspect]
     Indication: BLOOD TESTOSTERONE DECREASED
     Dosage: 4 PUMPS A DAY?4 PUMPS A DAY
     Dates: start: 201107
  2. CRESTOR [Concomitant]
     Indication: BLOOD CHOLESTEROL DECREASED
  3. PROPECIA [Concomitant]
     Indication: HAIR DISORDER
  4. VITAMIN D [Concomitant]
     Indication: PRODUCT USED FOR UNKNOWN INDICATION
  5. FISH OIL [Concomitant]
     Indication: PRODUCT USED FOR UNKNOWN INDICATION
  6. MINOXIDIL [Concomitant]
     Indication: PRODUCT USED FOR UNKNOWN INDICATION
  7. WELLBUTRIN [Concomitant]
     Indication: PRODUCT USED FOR UNKNOWN INDICATION

REACTIONS (2)
  - Furuncle [Not Recovered/Not Resolved]
  - Acne [Not Recovered/Not Resolved]
